FAERS Safety Report 7338373-2 (Version None)
Quarter: 2011Q1

REPORT INFORMATION
  Report Type: 
  Country: None (occurrence: None)
  Receive Date: 20110303
  Receipt Date: 20110303
  Transmission Date: 20110831
  Serious: Yes (Hospitalization)
  Sender: FDA-Public Use
  Company Number: None

PATIENT
  Age: 75 Year
  Sex: Male

DRUGS (2)
  1. WARFARIN SODIUM [Suspect]
     Indication: VASCULAR OPERATION
     Dosage: 2.5 MG EVERY DAY PO
     Route: 048
     Dates: start: 20110211, end: 20110216
  2. WARFARIN SODIUM [Suspect]
     Indication: ATRIAL FIBRILLATION
     Dosage: 2.5 MG EVERY DAY PO
     Route: 048
     Dates: start: 20110211, end: 20110216

REACTIONS (4)
  - HAEMOGLOBIN DECREASED [None]
  - HAEMATOCHEZIA [None]
  - GASTRIC HAEMORRHAGE [None]
  - HAEMORRHAGE [None]
